FAERS Safety Report 7026650-4 (Version None)
Quarter: 2010Q4

REPORT INFORMATION
  Report Type: 
  Country: None (occurrence: None)
  Receive Date: 20101004
  Receipt Date: 20101004
  Transmission Date: 20110411
  Serious: Yes (Other)
  Sender: FDA-Public Use
  Company Number: BR-JNJFOC-20100801341

PATIENT
  Age: 75 Year
  Sex: Female
  Weight: 73 kg

DRUGS (3)
  1. REMINYL ER [Suspect]
     Indication: VASCULAR DEMENTIA
     Route: 065
  2. REMINYL ER [Suspect]
     Dosage: 1 CAPSULE IN THE MORNING AND 1 CAPSULE AT NIGHT
     Route: 065
  3. REMINYL ER [Suspect]
     Route: 065

REACTIONS (9)
  - ASTHENIA [None]
  - BLOOD PRESSURE INCREASED [None]
  - DECREASED APPETITE [None]
  - DIARRHOEA [None]
  - DRUG PRESCRIBING ERROR [None]
  - MALAISE [None]
  - MEDICATION ERROR [None]
  - NAUSEA [None]
  - VOMITING [None]
